FAERS Safety Report 24561606 (Version 2)
Quarter: 2024Q4

REPORT INFORMATION
  Report Type: Spontaneous
  Country: CA (occurrence: CA)
  Receive Date: 20241029
  Receipt Date: 20241118
  Transmission Date: 20250115
  Serious: Yes (Death, Hospitalization)
  Sender: TEVA
  Company Number: CA-TEVA-VS-3258357

PATIENT
  Age: 6 Month
  Sex: Female

DRUGS (1)
  1. ALBUTEROL [Suspect]
     Active Substance: ALBUTEROL
     Indication: Gene mutation
     Dosage: TIME INTERVAL: 0.33333333 DAYS
     Route: 048

REACTIONS (1)
  - Therapeutic product ineffective [Fatal]
